FAERS Safety Report 6645061-4 (Version None)
Quarter: 2010Q1

REPORT INFORMATION
  Report Type: 
  Country: None (occurrence: None)
  Receive Date: 20100322
  Receipt Date: 20100309
  Transmission Date: 20100710
  Serious: Yes (Death, Hospitalization, Other)
  Sender: FDA-Public Use
  Company Number: US-TYCO HEALTHCARE/MALLINCKRODT-T200802084

PATIENT
  Sex: Female
  Weight: 55.102 kg

DRUGS (13)
  1. OPTIMARK [Suspect]
     Indication: RENAL MASS
     Dosage: 20 ML, SINGLE
     Route: 042
     Dates: start: 20050623, end: 20050623
  2. OPTIMARK [Suspect]
     Indication: RENAL ABSCESS
     Dosage: 20 ML, SINGLE
     Dates: start: 20050705, end: 20050705
  3. GADOLINIUM [Suspect]
     Indication: SUBMANDIBULAR MASS
     Dosage: UNK
     Dates: start: 20040907, end: 20040907
  4. GADOLINIUM [Suspect]
     Indication: NECK MASS
     Dosage: UNK
     Dates: start: 20041201, end: 20041201
  5. MORPHINE [Concomitant]
  6. OXYCODONE HCL [Concomitant]
  7. CEFTAZIDIME [Concomitant]
  8. GENTAMICIN [Concomitant]
  9. NAPROXEN [Concomitant]
  10. METHYLPREDNISOLONE [Concomitant]
  11. PROMETHAZINE [Concomitant]
  12. LEVALBUTEROL HYDROCHLORIDE [Concomitant]
  13. PROTONIX                           /01263201/ [Concomitant]

REACTIONS (37)
  - ABDOMINAL PAIN [None]
  - ACUTE PULMONARY OEDEMA [None]
  - ACUTE RESPIRATORY DISTRESS SYNDROME [None]
  - ACUTE RESPIRATORY FAILURE [None]
  - ANAEMIA [None]
  - ASTHENIA [None]
  - BACK PAIN [None]
  - CARDIAC FAILURE CONGESTIVE [None]
  - CARDIO-RESPIRATORY ARREST [None]
  - CEREBROVASCULAR ACCIDENT [None]
  - CHEST PAIN [None]
  - CHRONIC OBSTRUCTIVE PULMONARY DISEASE [None]
  - COMA [None]
  - DEPRESSION [None]
  - DRUG PRESCRIBING ERROR [None]
  - HERPES ZOSTER [None]
  - HYPERKALAEMIA [None]
  - HYPERTENSION [None]
  - HYPOGLYCAEMIA [None]
  - INFLUENZA [None]
  - MALNUTRITION [None]
  - METABOLIC ACIDOSIS [None]
  - NEPHROGENIC SYSTEMIC FIBROSIS [None]
  - OEDEMA PERIPHERAL [None]
  - OFF LABEL USE [None]
  - OSTEOARTHRITIS [None]
  - OSTEOPOROSIS [None]
  - OVERDOSE [None]
  - PAIN [None]
  - PAIN IN EXTREMITY [None]
  - PNEUMONIA ASPIRATION [None]
  - RENAL FAILURE CHRONIC [None]
  - SHOCK [None]
  - TACHYCARDIA [None]
  - THROMBOCYTOPENIA [None]
  - URINARY TRACT INFECTION [None]
  - VISION BLURRED [None]
